FAERS Safety Report 16731803 (Version 1)
Quarter: 2019Q3

REPORT INFORMATION
  Report Type: Spontaneous
  Country: IT (occurrence: IT)
  Receive Date: 20190822
  Receipt Date: 20190822
  Transmission Date: 20191005
  Serious: Yes (Other)
  Sender: FDA-Public Use
  Company Number: IT-TEVA-2019-IT-1094671

PATIENT
  Age: 71 Year
  Sex: Male

DRUGS (4)
  1. KARVEA [Concomitant]
     Active Substance: IRBESARTAN
  2. FULCROSUPRA 145 MG COMPRESSE RIVESTITE CON FILM [Concomitant]
     Route: 048
  3. GLUCOBAY 50 MG COMPRESSE [Concomitant]
     Route: 048
  4. PIOGLITAZONE HYDROCHLORIDE. [Suspect]
     Active Substance: PIOGLITAZONE HYDROCHLORIDE
     Route: 048
     Dates: start: 20080301, end: 20190301

REACTIONS (2)
  - Bladder cancer [Unknown]
  - Haematuria [Unknown]

NARRATIVE: CASE EVENT DATE: 20190301
